FAERS Safety Report 20363411 (Version 1)
Quarter: 2022Q1

REPORT INFORMATION
  Report Type: Spontaneous
  Country: CN (occurrence: None)
  Receive Date: 20220121
  Receipt Date: 20220121
  Transmission Date: 20220423
  Serious: Yes (Other)
  Sender: FDA-Public Use
  Company Number: 2022A028212

PATIENT
  Age: 70 Year
  Sex: Female
  Weight: 75 kg

DRUGS (1)
  1. IMFINZI [Suspect]
     Active Substance: DURVALUMAB
     Indication: Non-small cell lung cancer stage III
     Dosage: 1500.0MG EVERY CYCLE
     Route: 042
     Dates: start: 20210517, end: 20210704

REACTIONS (1)
  - Radiation pneumonitis [Unknown]

NARRATIVE: CASE EVENT DATE: 20211101
